FAERS Safety Report 6408625-9 (Version None)
Quarter: 2009Q4

REPORT INFORMATION
  Report Type: 
  Country: None (occurrence: None)
  Receive Date: 20091021
  Receipt Date: 20091009
  Transmission Date: 20100525
  Serious: Yes (Death, Hospitalization)
  Sender: FDA-Public Use
  Company Number: JP-PFIZER INC-2009273921

PATIENT
  Age: 68 Year

DRUGS (5)
  1. SUNITINIB MALATE [Suspect]
     Indication: HEPATIC NEOPLASM MALIGNANT
     Dosage: 37.5 MG, 1X/DAY
     Route: 048
     Dates: start: 20090825
  2. OXYCONTIN [Concomitant]
     Dosage: UNK
     Route: 048
     Dates: start: 20090811, end: 20091001
  3. LIVACT [Concomitant]
     Dosage: UNK
     Route: 048
     Dates: start: 20090811, end: 20091003
  4. PARIET [Concomitant]
     Dosage: UNK
     Route: 048
     Dates: start: 20090813, end: 20091003
  5. RINDERON [Concomitant]

REACTIONS (2)
  - DEATH [None]
  - PLATELET COUNT DECREASED [None]
